FAERS Safety Report 6795362-4 (Version None)
Quarter: 2010Q2

REPORT INFORMATION
  Report Type: 
  Country: None (occurrence: None)
  Receive Date: 20100625
  Receipt Date: 20100614
  Transmission Date: 20101027
  Serious: Yes (Congenital Anomaly, Other)
  Sender: FDA-Public Use
  Company Number: US-GILEAD-2010-0028641

PATIENT
  Sex: Male

DRUGS (10)
  1. TRUVADA [Suspect]
     Indication: HIV INFECTION
     Route: 064
     Dates: end: 20090728
  2. VIREAD [Suspect]
     Indication: HIV INFECTION
     Route: 064
     Dates: start: 20091015
  3. REYATAZ [Concomitant]
     Indication: HIV INFECTION
     Route: 064
     Dates: end: 20090728
  4. REYATAZ [Concomitant]
     Route: 064
     Dates: start: 20090924, end: 20091015
  5. NORVIR [Concomitant]
     Indication: HIV INFECTION
     Route: 064
     Dates: end: 20090728
  6. NORVIR [Concomitant]
     Route: 064
     Dates: start: 20091015
  7. COMBIVIR [Concomitant]
     Indication: HIV INFECTION
     Route: 064
     Dates: start: 20090728, end: 20090924
  8. KALETRA [Concomitant]
     Indication: HIV INFECTION
     Route: 064
     Dates: start: 20090728, end: 20090924
  9. EPIVIR [Concomitant]
     Indication: HIV INFECTION
     Route: 064
     Dates: start: 20090924
  10. LEXIVA [Concomitant]
     Indication: HIV INFECTION
     Route: 064
     Dates: start: 20091015, end: 20091217

REACTIONS (2)
  - ADRENOGENITAL SYNDROME [None]
  - PYELOCALIECTASIS [None]
